FAERS Safety Report 4498435-4 (Version None)
Quarter: 2004Q4

REPORT INFORMATION
  Report Type: 
  Country: None (occurrence: None)
  Receive Date: 20041105
  Receipt Date: 20041027
  Transmission Date: 20050328
  Serious: No
  Sender: FDA-Public Use
  Company Number: A044-002-005283

PATIENT
  Age: 60 Year
  Sex: Male

DRUGS (3)
  1. ARICEPT [Suspect]
     Dosage: ORAL
     Route: 048
     Dates: start: 20040101, end: 20040101
  2. SERTRALINE HCL [Suspect]
     Dosage: 25 MG, 1 IN 1 D, ORAL
     Route: 048
     Dates: start: 20030101, end: 20040101
  3. PIPAMPERONE (PIPAMPERONE) [Suspect]
     Dosage: ORAL
     Route: 048
     Dates: start: 19840101, end: 20040101

REACTIONS (1)
  - RHABDOMYOLYSIS [None]
